FAERS Safety Report 9983106 (Version 1)
Quarter: 2014Q1

REPORT INFORMATION
  Report Type: Report from Study
  Country: US (occurrence: US)
  Receive Date: 20140307
  Receipt Date: 20140307
  Transmission Date: 20141002
  Serious: No
  Sender: FDA-Public Use
  Company Number: US-ABBVIE-13P-163-1179738-00

PATIENT
  Age: 38 Year
  Sex: Male

DRUGS (6)
  1. HUMIRA [Suspect]
     Indication: PSORIASIS
     Dates: start: 20131023, end: 20131023
  2. HUMIRA [Suspect]
     Dates: start: 20131030, end: 20131030
  3. HUMIRA [Suspect]
     Dates: start: 20131113, end: 20131113
  4. HUMIRA [Suspect]
     Dates: start: 20131127
  5. ZANTAC [Concomitant]
     Indication: GASTROOESOPHAGEAL REFLUX DISEASE
     Dosage: DAILY AND AS NEEDED
  6. BENADRYL [Concomitant]
     Indication: HYPERSENSITIVITY

REACTIONS (7)
  - Wrong technique in drug usage process [Unknown]
  - Nausea [Recovered/Resolved]
  - Abdominal pain upper [Recovered/Resolved]
  - Nausea [Recovered/Resolved]
  - Abdominal pain upper [Recovered/Resolved]
  - Psoriasis [Unknown]
  - Incorrect dose administered [Unknown]
